FAERS Safety Report 18441395 (Version 1)
Quarter: 2020Q4

REPORT INFORMATION
  Report Type: Spontaneous
  Country: FR (occurrence: FR)
  Receive Date: 20201029
  Receipt Date: 20201029
  Transmission Date: 20210114
  Serious: Yes (Hospitalization)
  Sender: FDA-Public Use
  Company Number: FR-TEVA-2020-FR-1841831

PATIENT
  Age: 71 Year
  Sex: Female

DRUGS (4)
  1. ATORVASTATINE [Suspect]
     Active Substance: ATORVASTATIN
     Indication: PRODUCT USED FOR UNKNOWN INDICATION
     Dosage: 10 MG
     Route: 048
     Dates: start: 2017, end: 20201005
  2. THYROXINE SODEE [Suspect]
     Active Substance: LEVOTHYROXINE SODIUM
     Indication: THYROIDECTOMY
     Dosage: 10 GTT
     Route: 048
     Dates: start: 2017
  3. PLAVIX [Suspect]
     Active Substance: CLOPIDOGREL BISULFATE
     Indication: PRODUCT USED FOR UNKNOWN INDICATION
     Route: 048
     Dates: start: 2017
  4. AMOXICILLINE TRIHYDRATEE [Suspect]
     Active Substance: AMOXICILLIN
     Indication: TOOTH INFECTION
     Route: 048
     Dates: start: 20200928, end: 20201004

REACTIONS (1)
  - Pancreatitis acute [Not Recovered/Not Resolved]

NARRATIVE: CASE EVENT DATE: 20201004
